FAERS Safety Report 6188190-4 (Version None)
Quarter: 2009Q2

REPORT INFORMATION
  Report Type: 
  Country: None (occurrence: None)
  Receive Date: 20090513
  Receipt Date: 20090506
  Transmission Date: 20091009
  Serious: Yes (Death, Hospitalization)
  Sender: FDA-Public Use
  Company Number: DE-CELGENEUS-062-21880-09050318

PATIENT
  Sex: Male
  Weight: 60 kg

DRUGS (8)
  1. REVLIMID [Suspect]
     Indication: PLASMACYTOMA
     Route: 048
     Dates: start: 20080601
  2. DEXAMETHASONE 4MG TAB [Concomitant]
     Indication: PLASMACYTOMA
     Route: 048
  3. VELCADE [Concomitant]
     Indication: PLASMACYTOMA
     Route: 065
     Dates: start: 20070801, end: 20080501
  4. CERNEVIT-12 [Concomitant]
     Route: 065
     Dates: start: 20080501
  5. DURAGESIC-100 [Concomitant]
     Route: 065
  6. LYRICA [Concomitant]
     Route: 065
  7. CIPROFLOXACIN [Concomitant]
     Indication: ANTIBIOTIC THERAPY
     Route: 065
     Dates: start: 20080601
  8. BLOOD TRANSFUSION [Concomitant]
     Route: 065
     Dates: start: 20080101, end: 20080101

REACTIONS (2)
  - ABSCESS [None]
  - SKIN NECROSIS [None]
